FAERS Safety Report 16140505 (Version 1)
Quarter: 2019Q2

REPORT INFORMATION
  Report Type: Spontaneous
  Country: US (occurrence: US)
  Receive Date: 20190401
  Receipt Date: 20190401
  Transmission Date: 20190711
  Serious: Yes (Hospitalization)
  Sender: FDA-Public Use
  Company Number: US-TARO PHARMACEUTICALS USA.,INC-2019SUN00127

PATIENT
  Age: 68 Year
  Sex: Female

DRUGS (1)
  1. AMIODARONE [Suspect]
     Active Substance: AMIODARONE
     Indication: ATRIAL FIBRILLATION
     Dosage: UNK
     Route: 065

REACTIONS (5)
  - Atrioventricular block complete [Recovered/Resolved]
  - Device pacing issue [Recovered/Resolved]
  - Presyncope [Unknown]
  - Ventricular extrasystoles [Recovered/Resolved]
  - Off label use [Unknown]
